FAERS Safety Report 26152256 (Version 1)
Quarter: 2025Q4

REPORT INFORMATION
  Report Type: Spontaneous
  Country: IN (occurrence: IN)
  Receive Date: 20251214
  Receipt Date: 20251214
  Transmission Date: 20260117
  Serious: Yes (Hospitalization, Other)
  Sender: B. BRAUN MEDICAL INC.
  Company Number: IN-B. Braun Medical Inc.-IN-BBM-202504786

PATIENT
  Age: 70 Year
  Sex: Female

DRUGS (2)
  1. BUPIVACAINE [Suspect]
     Active Substance: BUPIVACAINE
     Indication: Hip arthroplasty
     Dosage: BUPIVACAINE (HEAVY) 0.5% 3 ML
  2. FENTANYL [Concomitant]
     Active Substance: FENTANYL
     Indication: Hip arthroplasty
     Dosage: 25 G (0.5 ML)

REACTIONS (1)
  - Spinal cord infarction [Recovering/Resolving]
